FAERS Safety Report 18432838 (Version 1)
Quarter: 2020Q4

REPORT INFORMATION
  Report Type: Spontaneous
  Country: US (occurrence: CO)
  Receive Date: 20201027
  Receipt Date: 20201027
  Transmission Date: 20210114
  Serious: Yes (Hospitalization)
  Sender: FDA-Public Use
  Company Number: CO-BIOMARINAP-CO-2020-132705

PATIENT
  Age: 8 Year
  Sex: Female

DRUGS (1)
  1. ALDURAZYME [Suspect]
     Active Substance: LARONIDASE
     Indication: MUCOPOLYSACCHARIDOSIS I
     Dosage: 2 DOSAGE FORM
     Route: 065
     Dates: start: 20170428

REACTIONS (2)
  - Blood pressure increased [Not Recovered/Not Resolved]
  - Oncologic complication [Recovering/Resolving]

NARRATIVE: CASE EVENT DATE: 20200903
